FAERS Safety Report 5633190-3 (Version None)
Quarter: 2008Q1

REPORT INFORMATION
  Report Type: 
  Country: None (occurrence: None)
  Receive Date: 20080215
  Receipt Date: 20080204
  Transmission Date: 20080703
  Serious: Yes (Hospitalization)
  Sender: FDA-Public Use
  Company Number: MEDI-0006529

PATIENT

DRUGS (1)
  1. SYNAGIS [Suspect]

REACTIONS (1)
  - BRONCHIOLITIS [None]
